FAERS Safety Report 4367718-0 (Version None)
Quarter: 2004Q2

REPORT INFORMATION
  Report Type: 
  Country: None (occurrence: None)
  Receive Date: 20040526
  Receipt Date: 20030930
  Transmission Date: 20050107
  Serious: Yes (Hospitalization)
  Sender: FDA-Public Use
  Company Number: USA030948649

PATIENT
  Age: 19 Year
  Sex: Female

DRUGS (1)
  1. ZYPREXA [Suspect]

REACTIONS (3)
  - DYSKINESIA [None]
  - INTENTIONAL OVERDOSE [None]
  - TACHYCARDIA [None]
